FAERS Safety Report 8845748 (Version 1)
Quarter: 2012Q4

REPORT INFORMATION
  Report Type: 
  Country: DE (occurrence: DE)
  Receive Date: 20121017
  Receipt Date: 20121017
  Transmission Date: 20130627
  Serious: Yes (Other)
  Sender: FDA-Public Use
  Company Number: DE-JNJFOC-20121009682

PATIENT
  Age: 70 Year
  Sex: Female

DRUGS (1)
  1. XARELTO [Suspect]
     Indication: PRODUCT USED FOR UNKNOWN INDICATION
     Route: 048
     Dates: start: 20120912, end: 20120917

REACTIONS (4)
  - Skin haemorrhage [Recovering/Resolving]
  - Hypoaesthesia [Recovering/Resolving]
  - Oedema peripheral [Unknown]
  - Nausea [Unknown]
